FAERS Safety Report 9112741 (Version 2)
Quarter: 2013Q1

REPORT INFORMATION
  Report Type: Spontaneous
  Country: US (occurrence: US)
  Receive Date: 20130208
  Receipt Date: 20130305
  Transmission Date: 20140127
  Serious: Yes (Hospitalization)
  Sender: FDA-Public Use
  Company Number: US-DX529-2013DX000024

PATIENT
  Age: 42 Year
  Sex: Male

DRUGS (3)
  1. KALBITOR [Suspect]
     Indication: HEREDITARY ANGIOEDEMA
     Route: 058
     Dates: start: 20110330
  2. KALBITOR [Suspect]
     Indication: HEREDITARY ANGIOEDEMA
     Route: 058
     Dates: start: 20130202, end: 20130202
  3. KALBITOR [Suspect]
     Indication: HEREDITARY ANGIOEDEMA
     Route: 058
     Dates: start: 20130203, end: 20130203

REACTIONS (4)
  - Dyspnoea [Unknown]
  - Malaise [Unknown]
  - Hereditary angioedema [Unknown]
  - Drug ineffective [Recovered/Resolved]
